FAERS Safety Report 10136709 (Version 2)
Quarter: 2015Q1

REPORT INFORMATION
  Report Type: Spontaneous
  Country: US (occurrence: None)
  Receive Date: 20140425
  Receipt Date: 20150112
  Transmission Date: 20150720
  Serious: Yes (Hospitalization)
  Sender: FDA-Public Use
  Company Number: UTC-047271

PATIENT
  Age: 66 Year
  Sex: Female

DRUGS (1)
  1. TYVASO [Suspect]
     Active Substance: TREPROSTINIL
     Indication: COR PULMONALE CHRONIC
     Route: 055
     Dates: start: 20140302

REACTIONS (2)
  - Pneumonia [None]
  - Dyspnoea [None]

NARRATIVE: CASE EVENT DATE: 20140407
